FAERS Safety Report 12478247 (Version 3)
Quarter: 2016Q3

REPORT INFORMATION
  Report Type: Spontaneous
  Country: US (occurrence: US)
  Receive Date: 20160617
  Receipt Date: 20160815
  Transmission Date: 20161109
  Serious: No
  Sender: FDA-Public Use
  Company Number: US-ALEXION-A201604432

PATIENT
  Age: 19 Year
  Sex: Female

DRUGS (1)
  1. SOLIRIS [Suspect]
     Active Substance: ECULIZUMAB
     Indication: HAEMOLYTIC URAEMIC SYNDROME
     Dosage: 1200 MG, Q28 DAYS
     Route: 042
     Dates: start: 20120531, end: 20160428

REACTIONS (5)
  - Dizziness [Unknown]
  - Fatigue [Unknown]
  - Inappropriate schedule of drug administration [Recovered/Resolved]
  - Blood count abnormal [Not Recovered/Not Resolved]
  - Platelet count decreased [Not Recovered/Not Resolved]

NARRATIVE: CASE EVENT DATE: 20120531
